FAERS Safety Report 20318915 (Version 7)
Quarter: 2022Q2

REPORT INFORMATION
  Report Type: Report from Study
  Country: DE (occurrence: DE)
  Receive Date: 20220110
  Receipt Date: 20220622
  Transmission Date: 20220720
  Serious: Yes (Other)
  Sender: FDA-Public Use
  Company Number: DE-NOVARTISPH-NVSC2022DE001982

PATIENT
  Age: 47 Year
  Sex: Male
  Weight: 62 kg

DRUGS (38)
  1. TRAMETINIB [Suspect]
     Active Substance: TRAMETINIB
     Indication: Malignant melanoma
     Dosage: 400 MG 2 TIMES PER DAY
     Route: 048
     Dates: start: 20190129, end: 20190129
  2. TRAMETINIB [Suspect]
     Active Substance: TRAMETINIB
     Dosage: 400 MG 2 TIMES PER DAY
     Route: 048
     Dates: start: 20190131, end: 20190202
  3. TRAMETINIB [Suspect]
     Active Substance: TRAMETINIB
     Dosage: 400 MG 2 TIMES PER DAY
     Route: 048
     Dates: start: 20190203, end: 20190203
  4. TRAMETINIB [Suspect]
     Active Substance: TRAMETINIB
     Dosage: 400 MG 2 TIMES PER DAY
     Route: 048
     Dates: start: 20190204, end: 20190214
  5. TRAMETINIB [Suspect]
     Active Substance: TRAMETINIB
     Dosage: 400 MG 2 TIMES PER DAY
     Route: 048
     Dates: start: 20190215, end: 20190215
  6. TRAMETINIB [Suspect]
     Active Substance: TRAMETINIB
     Dosage: 400 MG 2 TIMES PER DAY
     Route: 048
     Dates: start: 20190216, end: 20190303
  7. TRAMETINIB [Suspect]
     Active Substance: TRAMETINIB
     Dosage: 400 MG 2 TIMES PER DAY
     Route: 048
     Dates: start: 20190304, end: 20190305
  8. TRAMETINIB [Suspect]
     Active Substance: TRAMETINIB
     Dosage: 400 MG 2 TIMES PER DAY
     Route: 048
     Dates: start: 20190311, end: 20190311
  9. TRAMETINIB [Suspect]
     Active Substance: TRAMETINIB
     Dosage: 400 MG 2 TIMES PER DAY
     Route: 048
     Dates: start: 20190312, end: 20190319
  10. TRAMETINIB [Suspect]
     Active Substance: TRAMETINIB
     Dosage: 400 MG 2 TIMES PER DAY
     Route: 048
     Dates: start: 20190320
  11. NAPORAFENIB [Suspect]
     Active Substance: NAPORAFENIB
     Indication: Malignant melanoma
     Dosage: 0.5 MG, CONT
     Route: 048
     Dates: start: 20190129, end: 20190129
  12. NAPORAFENIB [Suspect]
     Active Substance: NAPORAFENIB
     Dosage: 0.5 MG, CONT
     Route: 048
     Dates: start: 20190131, end: 20190305
  13. NAPORAFENIB [Suspect]
     Active Substance: NAPORAFENIB
     Dosage: 0.5 MG, CONT
     Route: 048
     Dates: start: 20190312
  14. TAVOR [Concomitant]
     Indication: Sedation
     Dosage: UNK
     Route: 065
     Dates: start: 20190123, end: 20190124
  15. MCP [Concomitant]
     Active Substance: METOCLOPRAMIDE HYDROCHLORIDE
     Indication: Prophylaxis of nausea and vomiting
     Dosage: UNK
     Route: 065
     Dates: start: 20190124, end: 20190124
  16. CALCIUM CHLORIDE\MAGNESIUM CHLORIDE\POTASSIUM CHLORIDE\SODIUM ACETATE\ [Concomitant]
     Active Substance: CALCIUM CHLORIDE\MAGNESIUM CHLORIDE\POTASSIUM CHLORIDE\SODIUM ACETATE\SODIUM CHLORIDE
     Indication: Vomiting
     Dosage: UNK
     Route: 065
     Dates: start: 20190212, end: 20190212
  17. CALCIUM CHLORIDE\MAGNESIUM CHLORIDE\POTASSIUM CHLORIDE\SODIUM ACETATE\ [Concomitant]
     Active Substance: CALCIUM CHLORIDE\MAGNESIUM CHLORIDE\POTASSIUM CHLORIDE\SODIUM ACETATE\SODIUM CHLORIDE
     Indication: Dehydration
     Dosage: UNK
     Route: 065
     Dates: start: 20190308, end: 20190311
  18. CALCIUM CHLORIDE\MAGNESIUM CHLORIDE\POTASSIUM CHLORIDE\SODIUM ACETATE\ [Concomitant]
     Active Substance: CALCIUM CHLORIDE\MAGNESIUM CHLORIDE\POTASSIUM CHLORIDE\SODIUM ACETATE\SODIUM CHLORIDE
     Indication: Prophylaxis against dehydration
     Dosage: UNK
     Route: 065
     Dates: start: 20190328, end: 20190328
  19. CALCIUM CHLORIDE\MAGNESIUM CHLORIDE\POTASSIUM CHLORIDE\SODIUM ACETATE\ [Concomitant]
     Active Substance: CALCIUM CHLORIDE\MAGNESIUM CHLORIDE\POTASSIUM CHLORIDE\SODIUM ACETATE\SODIUM CHLORIDE
     Dosage: UNK
     Route: 065
     Dates: start: 20190403, end: 20190403
  20. SOVENTOL [Concomitant]
     Indication: Rash
     Dosage: UNK
     Route: 065
     Dates: start: 20190213, end: 20190307
  21. SOVENTOL [Concomitant]
     Indication: Dermatitis acneiform
  22. METAMIZOLE [Concomitant]
     Active Substance: METAMIZOLE
     Indication: Pyrexia
     Dosage: UNK
     Route: 065
     Dates: start: 20190226, end: 20190310
  23. DIMENHYDRINATE [Concomitant]
     Active Substance: DIMENHYDRINATE
     Indication: Nausea
     Dosage: UNK
     Route: 065
     Dates: start: 20190305, end: 20190305
  24. MINOCYCLINE [Concomitant]
     Active Substance: MINOCYCLINE HYDROCHLORIDE
     Indication: Dermatitis acneiform
     Dosage: UNK
     Route: 065
     Dates: start: 20190305, end: 20190311
  25. CLINDAMYCIN [Concomitant]
     Active Substance: CLINDAMYCIN
     Indication: Dermatitis acneiform
     Dosage: UNK
     Route: 065
     Dates: start: 20190305, end: 20190308
  26. MOVICOL [Concomitant]
     Active Substance: POLYETHYLENE GLYCOL 3350\POTASSIUM CHLORIDE\SODIUM BICARBONATE\SODIUM CHLORIDE
     Indication: Constipation
     Dosage: UNK
     Route: 065
     Dates: start: 20190305, end: 20190319
  27. LAXANS [Concomitant]
     Indication: Constipation
     Dosage: UNK
     Route: 065
     Dates: start: 20190305, end: 20190319
  28. FRESUBIN [Concomitant]
     Active Substance: AMINO ACIDS\DEXTROSE\ELECTROLYTES NOS\SOYBEAN OIL\VITAMINS
     Indication: Weight decreased
     Dosage: UNK
     Route: 065
     Dates: start: 20190308
  29. DOXYCYCLINE [Concomitant]
     Active Substance: DOXYCYCLINE
     Indication: Dermatitis acneiform
     Dosage: UNK
     Route: 065
     Dates: start: 20190308, end: 20190318
  30. FUCIDINE [Concomitant]
     Indication: Rash
     Dosage: UNK
     Route: 065
     Dates: start: 20190308, end: 20190415
  31. FUCIDINE [Concomitant]
     Indication: Dermatitis acneiform
  32. DEXAMETHASONE [Concomitant]
     Active Substance: DEXAMETHASONE
     Indication: Nausea
     Dosage: UNK
     Route: 065
     Dates: start: 20190308, end: 20190311
  33. GLYCERIN [Concomitant]
     Active Substance: GLYCERIN
     Indication: Constipation
     Dosage: UNK
     Route: 065
     Dates: start: 20190308, end: 20190311
  34. DERMATOP [Concomitant]
     Active Substance: PREDNICARBATE
     Indication: Dermatitis acneiform
     Dosage: UNK
     Route: 065
     Dates: start: 20190309, end: 20190415
  35. DERMATOP [Concomitant]
     Active Substance: PREDNICARBATE
     Indication: Rash
  36. OPTIDERM [Concomitant]
     Indication: Rash
     Dosage: UNK
     Route: 065
     Dates: start: 20190319, end: 20190415
  37. OPTIDERM [Concomitant]
     Indication: Dry skin
  38. TRAMADOL [Concomitant]
     Active Substance: TRAMADOL
     Indication: Palmar-plantar erythrodysaesthesia syndrome
     Dosage: UNK
     Route: 065
     Dates: start: 20190403, end: 20190415

REACTIONS (2)
  - Precursor B-lymphoblastic lymphoma [Not Recovered/Not Resolved]
  - Second primary malignancy [Not Recovered/Not Resolved]

NARRATIVE: CASE EVENT DATE: 20211221
